FAERS Safety Report 6691635-4 (Version None)
Quarter: 2010Q2

REPORT INFORMATION
  Report Type: 
  Country: None (occurrence: None)
  Receive Date: 20100422
  Receipt Date: 20091005
  Transmission Date: 20101027
  Serious: No
  Sender: FDA-Public Use
  Company Number: US-ASTRAZENECA-2009SE11547

PATIENT
  Age: 86 Year
  Sex: Female
  Weight: 60.3 kg

DRUGS (11)
  1. TOPROL-XL [Suspect]
     Indication: MIGRAINE
     Dosage: TOPROL XL 200 MG DAILY
     Route: 048
     Dates: start: 19990101, end: 20090901
  2. TOPROL-XL [Suspect]
     Dosage: METOPROLOL SUCCINATE GENERIC 200 MG DAILY
     Route: 048
     Dates: start: 20090902
  3. METOPROLOL TARTRATE [Suspect]
  4. DIOVAN [Concomitant]
  5. NEXIUM [Concomitant]
  6. VYTORIN [Concomitant]
  7. BUMEX [Concomitant]
  8. XANAX [Concomitant]
     Indication: NERVOUSNESS
  9. POTASSIUM PILL (POTCL MICRO) [Concomitant]
  10. VICODIN [Concomitant]
     Indication: MIGRAINE
  11. TYELENOL [Concomitant]

REACTIONS (4)
  - ANAEMIA [None]
  - BURNING SENSATION [None]
  - CHEST DISCOMFORT [None]
  - HEART RATE INCREASED [None]
